FAERS Safety Report 6408871-4 (Version None)
Quarter: 2009Q4

REPORT INFORMATION
  Report Type: 
  Country: None (occurrence: None)
  Receive Date: 20091021
  Receipt Date: 20091013
  Transmission Date: 20100525
  Serious: Yes (Other)
  Sender: FDA-Public Use
  Company Number: FR-JNJFOC-20091004920

PATIENT
  Sex: Female

DRUGS (2)
  1. REMICADE [Suspect]
     Indication: RHEUMATOID ARTHRITIS
     Route: 042
  2. REMICADE [Suspect]
     Indication: ENTEROCOLITIS HAEMORRHAGIC
     Dosage: THERAPY DURATION FOR ONE YEAR PRIOR TO THE DATE OF THE REPORT
     Route: 042

REACTIONS (1)
  - BREAST CANCER [None]
